FAERS Safety Report 21329839 (Version 1)
Quarter: 2022Q3

REPORT INFORMATION
  Report Type: Spontaneous
  Country: US (occurrence: None)
  Receive Date: 20220913
  Receipt Date: 20220913
  Transmission Date: 20221027
  Serious: Yes (Hospitalization)
  Sender: FDA-Public Use
  Company Number: None

PATIENT
  Age: 66 Year
  Sex: Male
  Weight: 58.05 kg

DRUGS (11)
  1. RECLAST [Suspect]
     Active Substance: ZOLEDRONIC ACID
     Indication: Osteoporosis
     Dosage: OTHER FREQUENCY : ANNUALLY;?
     Route: 041
     Dates: start: 20220714, end: 20220714
  2. METFORMIN [Concomitant]
     Active Substance: METFORMIN HYDROCHLORIDE
  3. ATORVASTATIN [Concomitant]
     Active Substance: ATORVASTATIN
  4. MYRBETRIQ [Concomitant]
     Active Substance: MIRABEGRON
  5. BRILINTA [Concomitant]
     Active Substance: TICAGRELOR
  6. FLUOXETINE HYDROCHLORIDE [Concomitant]
     Active Substance: FLUOXETINE HYDROCHLORIDE
  7. Buproprion HCL ER [Concomitant]
  8. LOSARTAN POTASSIUM [Concomitant]
     Active Substance: LOSARTAN POTASSIUM
  9. MAGNESIUM OXIDE [Concomitant]
     Active Substance: MAGNESIUM OXIDE
  10. FERROUS GLUCONATE [Concomitant]
     Active Substance: FERROUS GLUCONATE
  11. ASPIRIN [Concomitant]
     Active Substance: ASPIRIN

REACTIONS (4)
  - Iron deficiency [None]
  - Acute kidney injury [None]
  - Pyrexia [None]
  - C-reactive protein increased [None]

NARRATIVE: CASE EVENT DATE: 20220722
